FAERS Safety Report 10287340 (Version 1)
Quarter: 2014Q3

REPORT INFORMATION
  Report Type: Spontaneous
  Country: US (occurrence: None)
  Receive Date: 20140707
  Receipt Date: 20140707
  Transmission Date: 20150326
  Serious: Yes (Hospitalization)
  Sender: FDA-Public Use
  Company Number: None

PATIENT
  Age: 73 Year
  Sex: Female
  Weight: 43.99 kg

DRUGS (2)
  1. SIMEPREVIR [Suspect]
     Active Substance: SIMEPREVIR
     Indication: CHRONIC HEPATITIS C
     Route: 048
     Dates: start: 20140404
  2. SOFOSBUVIR 400 MG [Suspect]
     Active Substance: SOFOSBUVIR
     Indication: CHRONIC HEPATITIS C
     Route: 048
     Dates: start: 20140404

REACTIONS (9)
  - Lactic acidosis [None]
  - Diabetic ketoacidosis [None]
  - Hypophagia [None]
  - Anaemia [None]
  - Asthenia [None]
  - Nausea [None]
  - Dizziness [None]
  - Fatigue [None]
  - Ketosis [None]

NARRATIVE: CASE EVENT DATE: 20140523
